FAERS Safety Report 6760307-X (Version None)
Quarter: 2010Q2

REPORT INFORMATION
  Report Type: 
  Country: None (occurrence: None)
  Receive Date: 20100608
  Receipt Date: 20100531
  Transmission Date: 20101027
  Serious: Yes (Hospitalization)
  Sender: FDA-Public Use
  Company Number: FR-ASTRAZENECA-2010SE25017

PATIENT
  Age: 32833 Day
  Sex: Female

DRUGS (7)
  1. MOPRAL [Suspect]
     Route: 048
     Dates: end: 20100429
  2. PAROXETINE HCL [Suspect]
     Indication: DEPRESSION
     Route: 048
     Dates: end: 20100429
  3. MODOPAR LP [Concomitant]
     Indication: PARKINSONISM
     Route: 048
  4. SINEMET [Concomitant]
     Indication: PARKINSONISM
     Route: 048
  5. FOSAMAX [Concomitant]
     Route: 048
  6. CACIT VITAMINE D3 [Concomitant]
     Indication: VITAMIN D DEFICIENCY
     Route: 048
  7. DOLIPRANE [Concomitant]
     Indication: PAIN
     Route: 048

REACTIONS (10)
  - ASTHENIA [None]
  - BLOOD ALKALINE PHOSPHATASE INCREASED [None]
  - DECREASED APPETITE [None]
  - DIARRHOEA [None]
  - DIVERTICULUM INTESTINAL [None]
  - DRUG INEFFECTIVE [None]
  - HYPOCALCAEMIA [None]
  - HYPOKALAEMIA [None]
  - PATHOGEN RESISTANCE [None]
  - PSEUDOMONAS INFECTION [None]
